FAERS Safety Report 9354302 (Version 1)
Quarter: 2013Q2

REPORT INFORMATION
  Report Type: Spontaneous
  Country: SE (occurrence: None)
  Receive Date: 20130613
  Receipt Date: 20130613
  Transmission Date: 20140414
  Serious: Yes (Life-Threatening)
  Sender: FDA-Public Use
  Company Number: 2013AP005992

PATIENT
  Age: 40 Year
  Sex: Male

DRUGS (1)
  1. SOTALOL [Suspect]
     Indication: OVERDOSE
     Dosage: 100 KBQ2

REACTIONS (6)
  - Electrocardiogram QT prolonged [None]
  - Torsade de pointes [None]
  - Intentional overdose [None]
  - Cardiac arrest [None]
  - Poisoning [None]
  - Loss of consciousness [None]
